FAERS Safety Report 9198793 (Version 1)
Quarter: 2013Q1

REPORT INFORMATION
  Report Type: Spontaneous
  Country: US (occurrence: US)
  Receive Date: 20130329
  Receipt Date: 20130329
  Transmission Date: 20140127
  Serious: No
  Sender: FDA-Public Use
  Company Number: US-ROXANE LABORATORIES, INC.-2013-RO-00415RO

PATIENT
  Sex: Female

DRUGS (2)
  1. QUETIAPINE FUMARATE [Suspect]
     Indication: BIPOLAR DISORDER
     Dosage: 400 MG
     Route: 048
  2. QUETIAPINE FUMARATE [Suspect]
     Indication: PSYCHOTIC DISORDER

REACTIONS (2)
  - Alopecia [Not Recovered/Not Resolved]
  - Weight increased [Not Recovered/Not Resolved]
